FAERS Safety Report 10081155 (Version 1)
Quarter: 2014Q2

REPORT INFORMATION
  Report Type: Spontaneous
  Country: US (occurrence: None)
  Receive Date: 20140415
  Receipt Date: 20140415
  Transmission Date: 20141212
  Serious: No
  Sender: FDA-Public Use
  Company Number: None

PATIENT
  Age: 71 Year
  Sex: Male
  Weight: 99.79 kg

DRUGS (2)
  1. TAMSULOSIN [Suspect]
     Indication: BENIGN PROSTATIC HYPERPLASIA
     Route: 048
     Dates: start: 20140224, end: 20140301
  2. FLUOXETINE [Suspect]
     Indication: DEPRESSION
     Route: 048

REACTIONS (5)
  - Overdose [None]
  - Medication error [None]
  - Wrong drug administered [None]
  - Product physical issue [None]
  - Circumstance or information capable of leading to medication error [None]
